FAERS Safety Report 9837844 (Version 1)
Quarter: 2013Q4

REPORT INFORMATION
  Report Type: Spontaneous
  Country: US (occurrence: None)
  Receive Date: 20131205
  Receipt Date: 20131205
  Transmission Date: 20140711
  Serious: No
  Sender: FDA-Public Use
  Company Number: 163-POMAL-13064191

PATIENT
  Age: 84 Year
  Sex: Female

DRUGS (7)
  1. POMALYST (POMALIDOMIDE) (3 MILLIGRAM, CAPSULES) [Suspect]
     Indication: PLASMA CELL MYELOMA
     Dosage: 21 IN 21 D
     Route: 048
     Dates: start: 20130516
  2. DOCUSATE (DOCUSATE) [Concomitant]
  3. MULTIVITAMIN [Concomitant]
  4. VITAMIN B6 (PYRIDOXINE HYDROCHLORIDE) [Concomitant]
  5. VITAMIN D3 (COLECALCIFEROL) [Concomitant]
  6. ZOLPIDEM (ZOLPIDEM) [Concomitant]
  7. WARFARIN [Concomitant]

REACTIONS (2)
  - Alopecia [None]
  - Full blood count decreased [None]
